FAERS Safety Report 8349103-X (Version None)
Quarter: 2012Q2

REPORT INFORMATION
  Report Type: 
  Country: None (occurrence: None)
  Receive Date: 20120508
  Receipt Date: 20120423
  Transmission Date: 20120825
  Serious: Yes (Hospitalization)
  Sender: FDA-Public Use
  Company Number: JP-2012-15085

PATIENT
  Age: 80 Year
  Sex: Female

DRUGS (9)
  1. NIFEDIPINE [Concomitant]
  2. MITIGLINIDE CALCIUM HYDRATE(MITIGLINIDE CALCIUM HYDRATE) [Suspect]
     Dosage: 30 MG MILLIGRAM(S), DAILY DOSE, ORAL
     Route: 048
  3. ZOLPIDEM TARTRATE [Concomitant]
  4. LANSOPRAZOLE [Concomitant]
  5. PAROXETINE HCL [Concomitant]
  6. TORSEMIDE [Concomitant]
  7. PLETAL [Suspect]
     Dosage: 100 MG MILLIGRAM(S), DAILY DOSE, ORAL
     Route: 048
  8. SENNOSIDE (SENNOSIDE A B CALCIUM) [Concomitant]
  9. ETODOLAC [Concomitant]

REACTIONS (8)
  - GASTROENTERITIS [None]
  - HYPOKALAEMIA [None]
  - HYPOGLYCAEMIC COMA [None]
  - RETINOPATHY [None]
  - HYPOREFLEXIA [None]
  - RENAL IMPAIRMENT [None]
  - CARDIAC MURMUR [None]
  - ANAEMIA [None]
